FAERS Safety Report 7781981-5 (Version None)
Quarter: 2011Q3

REPORT INFORMATION
  Report Type: 
  Country: None (occurrence: None)
  Receive Date: 20110927
  Receipt Date: 20110916
  Transmission Date: 20111222
  Serious: Yes (Hospitalization)
  Sender: FDA-Public Use
  Company Number: PHHY2011JP67956

PATIENT
  Sex: Female
  Weight: 68 kg

DRUGS (11)
  1. ALLOPURINOL [Suspect]
     Indication: HYPERLIPIDAEMIA
     Dosage: 200 MG, UNK
     Route: 048
     Dates: start: 20110709, end: 20110721
  2. CRESTOR [Suspect]
     Indication: HYPERLIPIDAEMIA
     Dosage: 2.5 MG, UNK
     Route: 048
     Dates: start: 20110709, end: 20110721
  3. ISOSORBIDE DINITRATE [Suspect]
     Dosage: 40 MG, UNK
     Route: 062
     Dates: start: 20110709, end: 20110721
  4. ETHYL ICOSAPENTATE [Suspect]
     Indication: HYPERLIPIDAEMIA
     Dosage: 1800 MG, UNK
     Route: 048
     Dates: start: 20110709, end: 20110721
  5. REZALTAS COMBINATION [Suspect]
     Indication: HYPERTENSION
     Route: 048
     Dates: start: 20110709, end: 20110721
  6. ASPIRIN [Suspect]
     Dosage: 100 MG, UNK
     Route: 048
     Dates: start: 20110709, end: 20110721
  7. DIGOXIN [Suspect]
     Dosage: 0.25 MG, UNK
     Route: 048
     Dates: start: 20110709, end: 20110721
  8. LEVOTHYROXINE SODIUM [Concomitant]
     Indication: HYPOTHYROIDISM
     Dosage: 75 MG, UNK
     Route: 048
     Dates: end: 20110721
  9. RASILEZ [Suspect]
     Indication: HYPERTENSION
     Dosage: 150 MG, DAILY
     Route: 048
     Dates: start: 20110709, end: 20110721
  10. SPIRONOLACTONE [Suspect]
     Dosage: 25 MG, UNK
     Route: 048
     Dates: start: 20110709
  11. EQUA [Suspect]
     Indication: DIABETES MELLITUS
     Dosage: 50 MG, UNK
     Route: 048
     Dates: start: 20110709, end: 20110716

REACTIONS (9)
  - DRUG ERUPTION [None]
  - HEADACHE [None]
  - PRURITUS [None]
  - SENSORY DISTURBANCE [None]
  - RASH [None]
  - RENAL IMPAIRMENT [None]
  - PYREXIA [None]
  - HYPERGLYCAEMIA [None]
  - ARTHRALGIA [None]
